FAERS Safety Report 24432782 (Version 2)
Quarter: 2025Q2

REPORT INFORMATION
  Report Type: Spontaneous
  Country: NL (occurrence: NL)
  Receive Date: 20241014
  Receipt Date: 20250415
  Transmission Date: 20250717
  Serious: Yes (Death, Other)
  Sender: CELLTRION
  Company Number: NL-PFIZER INC-PV202400035931

PATIENT

DRUGS (3)
  1. RITUXIMAB [Suspect]
     Active Substance: RITUXIMAB
     Indication: B-cell lymphoma
  2. RITUXIMAB [Suspect]
     Active Substance: RITUXIMAB
     Route: 037
  3. DEXAMETHASONE [Suspect]
     Active Substance: DEXAMETHASONE
     Indication: Product used for unknown indication

REACTIONS (3)
  - Brain oedema [Fatal]
  - Drug ineffective [Unknown]
  - Off label use [Unknown]
